FAERS Safety Report 9946463 (Version 1)
Quarter: 2014Q1

REPORT INFORMATION
  Report Type: Report from Study
  Country: US (occurrence: US)
  Receive Date: 20140303
  Receipt Date: 20140303
  Transmission Date: 20141002
  Serious: No
  Sender: FDA-Public Use
  Company Number: US-ABBVIE-13P-163-1063158-00

PATIENT
  Age: 51 Year
  Sex: Female

DRUGS (17)
  1. HUMIRA [Suspect]
     Indication: PSORIASIS
     Route: 058
     Dates: start: 20121119, end: 20130216
  2. OMEPRAZOLE [Concomitant]
     Indication: PROPHYLAXIS
  3. LOSARTAN [Concomitant]
     Indication: HYPERTENSION
  4. CYMBALTA [Concomitant]
     Indication: DEPRESSION
  5. CYMBALTA [Concomitant]
     Indication: FIBROMYALGIA
  6. LEVOTHYROXINE [Concomitant]
     Indication: HYPOTHYROIDISM
  7. ESTRADIOL [Concomitant]
     Indication: HORMONE REPLACEMENT THERAPY
     Dosage: GEL 2 PUMPS
     Route: 062
  8. VITAMIN D [Concomitant]
     Indication: VITAMIN D DECREASED
  9. FLONASE [Concomitant]
     Indication: SEASONAL ALLERGY
     Dosage: X 2 SPRAY BILATERAL NASAL
  10. ZYRTEC [Concomitant]
     Indication: SEASONAL ALLERGY
  11. CARISOPRODOL [Concomitant]
     Indication: INSOMNIA
  12. VERTICAL TOPICAL OINTMENT [Concomitant]
     Indication: PSORIASIS
     Dosage: 3 MCG/ 1 GM
     Route: 061
  13. XANAX [Concomitant]
     Indication: ANXIETY
     Dosage: (X1) TID/PRN
  14. ULTRAM [Concomitant]
     Indication: ARTHRALGIA
     Dosage: (X1) Q 8 HOURS PRN
  15. METOPROLOL [Concomitant]
     Indication: HYPERTENSION
  16. MELOXICAM [Concomitant]
     Indication: ARTHRALGIA
     Dosage: DAILY PNR
  17. AMLODIPINE [Concomitant]
     Indication: HYPERTENSION

REACTIONS (3)
  - Gait disturbance [Unknown]
  - Pain [Unknown]
  - Hypoaesthesia [Unknown]
